FAERS Safety Report 16487685 (Version 1)
Quarter: 2019Q3

REPORT INFORMATION
  Report Type: Spontaneous
  Country: US (occurrence: US)
  Receive Date: 20190626
  Receipt Date: 20190626
  Transmission Date: 20191004
  Serious: Yes (Hospitalization)
  Sender: FDA-Public Use
  Company Number: None

PATIENT
  Age: 69 Year
  Sex: Female

DRUGS (7)
  1. FUROSEMIDE,LISINOPRIL,POT CL MICRO [Concomitant]
  2. RISPERIDONE. [Concomitant]
     Active Substance: RISPERIDONE
  3. CIMZIA [Suspect]
     Active Substance: CERTOLIZUMAB PEGOL
     Indication: RHEUMATOID ARTHRITIS
     Dosage: ?          OTHER FREQUENCY:EVERY 2 WEEKS;?
     Route: 058
     Dates: start: 20180313
  4. VITAMIN D, XANAX [Concomitant]
  5. AZATHIOPRINE,CELECOXIB,DILTIAZEM [Concomitant]
  6. ASPIRIN,ATORVASTATIN,CARTIA, [Concomitant]
  7. QUETIAPINE,QUINAPRIL,SYNTHYROID, [Concomitant]

REACTIONS (2)
  - Therapy cessation [None]
  - Hospitalisation [None]

NARRATIVE: CASE EVENT DATE: 20190501
